FAERS Safety Report 7496920-4 (Version None)
Quarter: 2011Q2

REPORT INFORMATION
  Report Type: 
  Country: None (occurrence: None)
  Receive Date: 20110523
  Receipt Date: 20110516
  Transmission Date: 20111010
  Serious: Yes (Other)
  Sender: FDA-Public Use
  Company Number: US-MERCK-1105USA02525

PATIENT
  Age: 70 Year
  Sex: Male

DRUGS (4)
  1. COSOPT [Suspect]
     Indication: GLAUCOMA
     Route: 047
     Dates: start: 20100101, end: 20100101
  2. COSOPT [Suspect]
     Route: 047
     Dates: start: 20050101, end: 20100101
  3. XALATAN [Concomitant]
     Route: 065
  4. COSOPT [Suspect]
     Route: 047
     Dates: start: 20100101

REACTIONS (4)
  - EYE IRRITATION [None]
  - INTRAOCULAR PRESSURE INCREASED [None]
  - EYE DISORDER [None]
  - BLINDNESS UNILATERAL [None]
